FAERS Safety Report 8120537-1 (Version None)
Quarter: 2012Q1

REPORT INFORMATION
  Report Type: 
  Country: None (occurrence: None)
  Receive Date: 20120207
  Receipt Date: 20120126
  Transmission Date: 20120608
  Serious: Yes (Life-Threatening, Hospitalization, Other)
  Sender: FDA-Public Use
  Company Number: US-ELI_LILLY_AND_COMPANY-US201111007056

PATIENT
  Sex: Male

DRUGS (22)
  1. ASCORBIC ACID [Concomitant]
  2. LISINOPRIL [Concomitant]
     Dosage: 20 MG, QD
     Route: 048
  3. ATENOLOL [Concomitant]
     Dosage: 25 MG, QD
     Route: 048
  4. B12-VITAMIN [Concomitant]
  5. ACTOS [Concomitant]
  6. SINEMET [Concomitant]
  7. CALCIUM [Concomitant]
  8. VITAMIN E [Concomitant]
  9. ASPIRIN [Concomitant]
  10. LIPITOR [Concomitant]
     Dosage: 20 MG, EACH EVENING
     Route: 048
  11. VITAMIN D [Concomitant]
  12. LUNESTA [Concomitant]
  13. CALTRATE [Concomitant]
  14. FORTEO [Suspect]
     Indication: OSTEOPOROSIS
     Dosage: 20 UG, QD
     Dates: start: 20110501
  15. FUROSEMIDE [Concomitant]
     Dosage: 20 MG, 3/W
  16. FORTEO [Suspect]
     Dosage: 20 UG, QD
  17. SODIUM CHLORIDE [Concomitant]
  18. MULTI-VITAMIN [Concomitant]
  19. ASPIRIN [Concomitant]
     Dosage: 81 MG, QD
     Route: 048
  20. LYRICA [Concomitant]
  21. METFORMIN HCL [Concomitant]
  22. FOLIC ACID [Concomitant]

REACTIONS (4)
  - CORONARY ARTERY DISEASE [None]
  - RESPIRATORY FAILURE [None]
  - PNEUMONIA [None]
  - MYOCARDIAL INFARCTION [None]
